FAERS Safety Report 6403458-1 (Version None)
Quarter: 2009Q4

REPORT INFORMATION
  Report Type: 
  Country: None (occurrence: None)
  Receive Date: 20091015
  Receipt Date: 20091015
  Transmission Date: 20100525
  Serious: Yes (Other)
  Sender: FDA-Public Use
  Company Number: None

PATIENT
  Age: 13 Year
  Sex: Male
  Weight: 55.7924 kg

DRUGS (1)
  1. RELENZA [Suspect]
     Indication: INFLUENZA
     Dates: start: 20091007, end: 20091010

REACTIONS (2)
  - DISSOCIATION [None]
  - HALLUCINATION [None]
